FAERS Safety Report 10806075 (Version 1)
Quarter: 2015Q1

REPORT INFORMATION
  Report Type: Report from Study
  Country: US (occurrence: US)
  Receive Date: 20150217
  Receipt Date: 20150217
  Transmission Date: 20150721
  Serious: No
  Sender: FDA-Public Use
  Company Number: US-ABBVIE-14K-163-1246262-00

PATIENT
  Age: 39 Year
  Sex: Female

DRUGS (5)
  1. UNKNOWN FACE CREAMS [Concomitant]
     Indication: PSORIASIS
  2. HUMIRA [Suspect]
     Active Substance: ADALIMUMAB
     Indication: PSORIASIS
     Dates: start: 20140331
  3. DERMA [Concomitant]
     Indication: PSORIASIS
  4. UNKNOWN BODY CREAMS [Concomitant]
     Indication: PSORIASIS
  5. UNKNOWN ALLERGY PILL [Concomitant]
     Indication: PRODUCT USED FOR UNKNOWN INDICATION
     Dosage: OVER THE COUNTER

REACTIONS (1)
  - Inappropriate schedule of drug administration [Recovered/Resolved]

NARRATIVE: CASE EVENT DATE: 20140602
